FAERS Safety Report 8973934 (Version 2)
Quarter: 2012Q4

REPORT INFORMATION
  Report Type: 
  Country: US (occurrence: US)
  Receive Date: 20121218
  Receipt Date: 20121220
  Transmission Date: 20130627
  Serious: No
  Sender: FDA-Public Use
  Company Number: US-TEVA-373147USA

PATIENT
  Sex: Male

DRUGS (5)
  1. NUVIGIL [Suspect]
     Dosage: QAM
     Route: 048
     Dates: start: 201210
  2. NUVIGIL [Suspect]
  3. HYDROMORPHONE [Concomitant]
     Route: 048
  4. EXALGO [Concomitant]
  5. CELEBREX [Concomitant]
     Route: 048

REACTIONS (3)
  - Chest pain [Not Recovered/Not Resolved]
  - Pain [Not Recovered/Not Resolved]
  - Drug ineffective [Not Recovered/Not Resolved]
